FAERS Safety Report 26067399 (Version 1)
Quarter: 2025Q4

REPORT INFORMATION
  Report Type: Spontaneous
  Country: JP (occurrence: JP)
  Receive Date: 20251120
  Receipt Date: 20251120
  Transmission Date: 20260117
  Serious: Yes (Other)
  Sender: SANDOZ
  Company Number: JP-SANDOZ INC.-SDZ2025JP085136

PATIENT
  Age: 56 Year

DRUGS (38)
  1. NELARABINE [Suspect]
     Active Substance: NELARABINE
     Indication: Acute lymphocytic leukaemia
     Dosage: 1500 MG/M2, DAY 29,31,33
     Route: 042
  2. NELARABINE [Suspect]
     Active Substance: NELARABINE
     Dosage: 1500 MG/M2, DAY 29,31,33
     Route: 042
  3. CYCLOPHOSPHAMIDE [Suspect]
     Active Substance: CYCLOPHOSPHAMIDE
     Dosage: 1000 MG/M2, DAY 36
     Route: 042
  4. CYCLOPHOSPHAMIDE [Suspect]
     Active Substance: CYCLOPHOSPHAMIDE
     Indication: Acute lymphocytic leukaemia
     Dosage: 1200 MG/M2, DAY 8
     Route: 042
  5. CYTARABINE [Suspect]
     Active Substance: CYTARABINE
     Dosage: 40 MG, DAY 1
     Route: 028
  6. CYTARABINE [Suspect]
     Active Substance: CYTARABINE
     Dosage: 40 MG, DAY 1,15
     Route: 028
  7. CYTARABINE [Suspect]
     Active Substance: CYTARABINE
     Dosage: 40 MG, DAY 1,15
     Route: 028
  8. CYTARABINE [Suspect]
     Active Substance: CYTARABINE
     Dosage: 40 MG, DAY 1,36
     Route: 028
  9. CYTARABINE [Suspect]
     Active Substance: CYTARABINE
     Indication: Acute lymphocytic leukaemia
     Dosage: 40 MG, DAY 8,15
     Route: 028
  10. CYTARABINE [Suspect]
     Active Substance: CYTARABINE
     Dosage: 40 MG, DAY 8,15
     Route: 028
  11. CYTARABINE [Suspect]
     Active Substance: CYTARABINE
     Dosage: 75 MG/M2, DAY 36-40,43-47
     Route: 042
  12. CYTARABINE [Suspect]
     Active Substance: CYTARABINE
     Dosage: 1 G/M2, DAY 1,2,3
     Route: 042
  13. CYTARABINE [Suspect]
     Active Substance: CYTARABINE
     Dosage: 1 G/M2, DAY 1,2,3
     Route: 042
  14. DECADRON (DEXAMETHASONE SODIUM PHOSPHATE) [Suspect]
     Active Substance: DEXAMETHASONE SODIUM PHOSPHATE
     Dosage: 4 MG,DAY 1
     Route: 028
  15. DECADRON (DEXAMETHASONE SODIUM PHOSPHATE) [Suspect]
     Active Substance: DEXAMETHASONE SODIUM PHOSPHATE
     Dosage: 4 MG,DAY 1
     Route: 028
  16. DECADRON (DEXAMETHASONE SODIUM PHOSPHATE) [Suspect]
     Active Substance: DEXAMETHASONE SODIUM PHOSPHATE
     Dosage: 4 MG,DAY 1,15
     Route: 028
  17. DECADRON (DEXAMETHASONE SODIUM PHOSPHATE) [Suspect]
     Active Substance: DEXAMETHASONE SODIUM PHOSPHATE
     Dosage: 4 MG,DAY 1,15
     Route: 028
  18. DECADRON (DEXAMETHASONE SODIUM PHOSPHATE) [Suspect]
     Active Substance: DEXAMETHASONE SODIUM PHOSPHATE
     Dosage: 4 MG,DAY 1,36
     Route: 028
  19. DECADRON (DEXAMETHASONE SODIUM PHOSPHATE) [Suspect]
     Active Substance: DEXAMETHASONE SODIUM PHOSPHATE
     Indication: Acute lymphocytic leukaemia
     Dosage: 4 MG,DAY 8,15
     Route: 028
  20. DECADRON (DEXAMETHASONE SODIUM PHOSPHATE) [Suspect]
     Active Substance: DEXAMETHASONE SODIUM PHOSPHATE
     Dosage: 40 MG/M2, DAY 1,2,3
     Route: 042
  21. DECADRON (DEXAMETHASONE SODIUM PHOSPHATE) [Suspect]
     Active Substance: DEXAMETHASONE SODIUM PHOSPHATE
     Dosage: 40 MG/M2, DAY 1,2,3
     Route: 042
  22. DOXORUBICIN HYDROCHLORIDE [Suspect]
     Active Substance: DOXORUBICIN HYDROCHLORIDE
     Indication: Acute lymphocytic leukaemia
     Dosage: 30 MG/M2, DAY 1,8,15
     Route: 042
  23. DEXAMETHASONE [Suspect]
     Active Substance: DEXAMETHASONE
     Indication: Acute lymphocytic leukaemia
     Dosage: 10 MG/M2, DAY 1-8,15-22
     Route: 048
  24. MERCAPTOPURINE [Suspect]
     Active Substance: MERCAPTOPURINE
     Indication: Acute lymphocytic leukaemia
     Dosage: 25 MG/M2, DAY 1-21
     Route: 048
  25. MERCAPTOPURINE [Suspect]
     Active Substance: MERCAPTOPURINE
     Dosage: 25 MG/M2, DAY 1-21
     Route: 048
  26. MERCAPTOPURINE [Suspect]
     Active Substance: MERCAPTOPURINE
     Dosage: 60 MG/M2, DAY 36-39
     Route: 048
  27. METHOTREXATE [Suspect]
     Active Substance: METHOTREXATE
     Dosage: 15 MG, DAY 1
     Route: 028
  28. METHOTREXATE [Suspect]
     Active Substance: METHOTREXATE
     Dosage: 15 MG, DAY 1
     Route: 028
  29. METHOTREXATE [Suspect]
     Active Substance: METHOTREXATE
     Dosage: 15 MG, DAY 1,15
     Route: 028
  30. METHOTREXATE [Suspect]
     Active Substance: METHOTREXATE
     Dosage: 15 MG, DAY 1,15
     Route: 028
  31. METHOTREXATE [Suspect]
     Active Substance: METHOTREXATE
     Dosage: 15 MG, DAY 1,36
     Route: 028
  32. METHOTREXATE [Suspect]
     Active Substance: METHOTREXATE
     Indication: Acute lymphocytic leukaemia
     Dosage: 15 MG, DAY 8,15
     Route: 028
  33. METHOTREXATE [Suspect]
     Active Substance: METHOTREXATE
     Dosage: 1.5 G/M2, DAY 1,15
     Route: 042
  34. METHOTREXATE [Suspect]
     Active Substance: METHOTREXATE
     Dosage: 3 G/M2, DAY 1,15
     Route: 042
  35. VINCRISTINE SULFATE [Suspect]
     Active Substance: VINCRISTINE SULFATE
     Dosage: 1.3 MG/M2, DAY 1,15
     Route: 042
  36. VINCRISTINE SULFATE [Suspect]
     Active Substance: VINCRISTINE SULFATE
     Dosage: 1.3 MG/M2, DAY 1,15
     Route: 042
  37. VINCRISTINE SULFATE [Suspect]
     Active Substance: VINCRISTINE SULFATE
     Dosage: 1.3 MG/M2, DAY 1,8,15
     Route: 042
  38. VINCRISTINE SULFATE [Suspect]
     Active Substance: VINCRISTINE SULFATE
     Indication: Acute lymphocytic leukaemia
     Dosage: 1.3 MG/M2, DAY 8,15,22,29
     Route: 042

REACTIONS (5)
  - Peripheral sensory neuropathy [Unknown]
  - Peripheral motor neuropathy [Unknown]
  - Bladder dysfunction [Unknown]
  - Functional gastrointestinal disorder [Unknown]
  - Gait disturbance [Unknown]
